FAERS Safety Report 17092656 (Version 1)
Quarter: 2019Q4

REPORT INFORMATION
  Report Type: Spontaneous
  Country: US (occurrence: US)
  Receive Date: 20191129
  Receipt Date: 20191129
  Transmission Date: 20200122
  Serious: No
  Sender: FDA-Public Use
  Company Number: US-UCBSA-2018006974

PATIENT

DRUGS (2)
  1. KEPPRA [Suspect]
     Active Substance: LEVETIRACETAM
     Indication: EPILEPSY
     Dosage: UNK DOSE
  2. KEPPRA [Suspect]
     Active Substance: LEVETIRACETAM
     Dosage: 1500 MG, 2X/DAY (BID)

REACTIONS (7)
  - Muscle spasms [Recovered/Resolved]
  - Product dose omission [Unknown]
  - Anger [Unknown]
  - Weight decreased [Unknown]
  - Drug ineffective [Unknown]
  - Insomnia [Unknown]
  - Lethargy [Unknown]
